FAERS Safety Report 13938663 (Version 1)
Quarter: 2017Q3

REPORT INFORMATION
  Report Type: Report from Study
  Country: None (occurrence: US)
  Receive Date: 20170906
  Receipt Date: 20170906
  Transmission Date: 20171127
  Serious: Yes (Other)
  Sender: FDA-Public Use
  Company Number: US-ABBVIE-17K-163-2090018-00

PATIENT
  Sex: Male

DRUGS (1)
  1. HUMIRA [Suspect]
     Active Substance: ADALIMUMAB
     Indication: PSORIASIS
     Route: 058

REACTIONS (8)
  - Skin fissures [Not Recovered/Not Resolved]
  - Nerve injury [Unknown]
  - Rash [Not Recovered/Not Resolved]
  - Hypoaesthesia [Unknown]
  - Psoriasis [Not Recovered/Not Resolved]
  - Intervertebral disc protrusion [Unknown]
  - Post procedural complication [Unknown]
  - Therapeutic response shortened [Not Recovered/Not Resolved]

NARRATIVE: CASE EVENT DATE: 2017
